FAERS Safety Report 7454301-3 (Version None)
Quarter: 2011Q2

REPORT INFORMATION
  Report Type: 
  Country: None (occurrence: None)
  Receive Date: 20110503
  Receipt Date: 20110419
  Transmission Date: 20111010
  Serious: Yes (Other)
  Sender: FDA-Public Use
  Company Number: FR-JNJFOC-20110409678

PATIENT
  Sex: Male
  Weight: 63 kg

DRUGS (2)
  1. PREDNISOLONE [Suspect]
     Indication: PROSTATE CANCER
     Route: 048
  2. ABIRATERONE [Suspect]
     Indication: PROSTATE CANCER
     Route: 048

REACTIONS (1)
  - NEOPLASM PROGRESSION [None]
